FAERS Safety Report 8787428 (Version 2)
Quarter: 2012Q4

REPORT INFORMATION
  Report Type: 
  Country: US (occurrence: US)
  Receive Date: 20120914
  Receipt Date: 20121102
  Transmission Date: 20130627
  Serious: No
  Sender: FDA-Public Use
  Company Number: US-VERTEX PHARMACEUTICAL INC.-AE-2012-011879

PATIENT
  Sex: Female
  Weight: 62 kg

DRUGS (3)
  1. VX-950 [Suspect]
     Indication: HEPATITIS C
     Dosage: 750 mg, tid
     Route: 048
     Dates: start: 201205, end: 201210
  2. PEGASYS [Suspect]
     Indication: HEPATITIS C
     Dosage: 180 ?g, qw
     Route: 058
     Dates: start: 201205, end: 201205
  3. RIBASPHERE [Suspect]
     Indication: HEPATITIS C
     Dosage: 400 mg, bid
     Route: 048
     Dates: start: 201205, end: 201205

REACTIONS (5)
  - Oral pain [Unknown]
  - Fatigue [Unknown]
  - Drug ineffective [Recovered/Resolved]
  - Haemorrhoids [Unknown]
  - Anal pruritus [Unknown]
